FAERS Safety Report 25087111 (Version 4)
Quarter: 2025Q1

REPORT INFORMATION
  Report Type: Spontaneous
  Country: US (occurrence: US)
  Receive Date: 20250318
  Receipt Date: 20250328
  Transmission Date: 20250409
  Serious: Yes (Other)
  Sender: SANDOZ
  Company Number: US-SANDOZ-SDZ2025US015548

PATIENT
  Age: 42 Year
  Sex: Female

DRUGS (6)
  1. ONDANSETRON [Suspect]
     Active Substance: ONDANSETRON
     Indication: Nausea
     Dosage: 4 MG, Q6H
     Route: 065
  2. ONDANSETRON [Suspect]
     Active Substance: ONDANSETRON
     Indication: Vomiting
  3. OGSIVEO [Suspect]
     Active Substance: NIROGACESTAT HYDROBROMIDE
     Indication: Connective tissue neoplasm
     Dosage: 150 MG, BID
     Route: 048
     Dates: start: 20241001, end: 20241110
  4. OGSIVEO [Suspect]
     Active Substance: NIROGACESTAT HYDROBROMIDE
     Indication: Soft tissue neoplasm
     Dosage: 100 MG, BID
     Route: 065
     Dates: start: 20241111
  5. PROCHLORPERAZINE [Suspect]
     Active Substance: PROCHLORPERAZINE
     Indication: Vomiting
     Dosage: 10 MG, Q6H
     Route: 065
  6. PROCHLORPERAZINE [Suspect]
     Active Substance: PROCHLORPERAZINE
     Indication: Nausea

REACTIONS (25)
  - Tumour pain [Unknown]
  - Crying [Unknown]
  - Pruritus [Unknown]
  - Cough [Unknown]
  - Oropharyngeal pain [Unknown]
  - Fatigue [Not Recovered/Not Resolved]
  - Productive cough [Unknown]
  - Illness [Unknown]
  - Somnolence [Recovered/Resolved]
  - Diarrhoea [Unknown]
  - Hypophagia [Recovering/Resolving]
  - Retching [Unknown]
  - Nausea [Recovering/Resolving]
  - Headache [Unknown]
  - Feeling abnormal [Unknown]
  - Pain [Unknown]
  - Influenza like illness [Unknown]
  - Insomnia [Unknown]
  - Restless legs syndrome [Unknown]
  - Vomiting [Recovering/Resolving]
  - Pyrexia [Unknown]
  - Chills [Unknown]
  - Migraine [Unknown]
  - Abdominal pain [Unknown]
  - Product dose omission issue [Unknown]

NARRATIVE: CASE EVENT DATE: 20241001
